FAERS Safety Report 12860736 (Version 1)
Quarter: 2016Q4

REPORT INFORMATION
  Report Type: Spontaneous
  Country: US (occurrence: US)
  Receive Date: 20161019
  Receipt Date: 20161019
  Transmission Date: 20170207
  Serious: Yes (Hospitalization)
  Sender: FDA-Public Use
  Company Number: US-BELCHER PHARMACEUTICALS, LLC-2016VTS00204

PATIENT
  Sex: Male

DRUGS (1)
  1. HYOSCYAMINE SULFATE SL [Suspect]
     Active Substance: HYOSCYAMINE SULFATE
     Indication: GASTROINTESTINAL DISORDER
     Dosage: UNK
     Dates: start: 20160406

REACTIONS (1)
  - Ileus paralytic [Recovering/Resolving]

NARRATIVE: CASE EVENT DATE: 20160509
